FAERS Safety Report 8816755 (Version 1)
Quarter: 2012Q4

REPORT INFORMATION
  Report Type: Spontaneous
  Country: US (occurrence: None)
  Receive Date: 20121001
  Receipt Date: 20121001
  Transmission Date: 20130627
  Serious: Yes (Death)
  Sender: FDA-Public Use
  Company Number: 2012-489

PATIENT
  Age: 54 Year
  Sex: Female

DRUGS (7)
  1. FAZACLO [Suspect]
     Route: 048
     Dates: start: 20060829, end: 20120828
  2. LORAZEPAM (LORAZEPAM) [Concomitant]
  3. METHIMAZOLE (THIAMAZOLE) [Concomitant]
  4. OMEPRAZOLE (OMEPRAZOLE) [Concomitant]
  5. FUROSEMIDE (FUROSEMIDE) [Concomitant]
  6. PAROXETINE HCL (PAROXETINE HYDROCHLORIDE) [Concomitant]
  7. METOPROLOL (METOPROLOL TARTRATE) [Concomitant]

REACTIONS (1)
  - Myocardial infarction [None]
